FAERS Safety Report 7062314-9 (Version None)
Quarter: 2010Q4

REPORT INFORMATION
  Report Type: 
  Country: None (occurrence: None)
  Receive Date: 20101026
  Receipt Date: 20101025
  Transmission Date: 20110411
  Serious: Yes (Death)
  Sender: FDA-Public Use
  Company Number: BR-B.I. PHARMACEUTICALS,INC./RIDGEFIELD-2010-BR-02583BR

PATIENT
  Age: 86 Year
  Sex: Male

DRUGS (1)
  1. SPIRIVA RESPIMAT [Suspect]
     Indication: LUNG DISORDER
     Dosage: 5 MCG
     Dates: start: 20090501, end: 20101001

REACTIONS (2)
  - CARDIAC DISORDER [None]
  - LUNG DISORDER [None]
